FAERS Safety Report 14784694 (Version 1)
Quarter: 2018Q2

REPORT INFORMATION
  Report Type: Spontaneous
  Country: US (occurrence: US)
  Receive Date: 20180420
  Receipt Date: 20180420
  Transmission Date: 20180711
  Serious: No
  Sender: FDA-Public Use
  Company Number: US-JNJFOC-20180405451

PATIENT
  Age: 85 Year
  Sex: Male
  Weight: 83.92 kg

DRUGS (17)
  1. POTASSIUM [Concomitant]
     Active Substance: POTASSIUM
     Route: 048
  2. POTASSIUM [Concomitant]
     Active Substance: POTASSIUM
     Dosage: HALF A TAB AT NIGHT
     Route: 048
  3. SEROQUEL [Concomitant]
     Active Substance: QUETIAPINE FUMARATE
     Indication: RELAXATION THERAPY
     Route: 048
  4. LISINOPRIL. [Concomitant]
     Active Substance: LISINOPRIL
     Dosage: HALF A TABLET AT NIGHT
     Route: 048
  5. PREDNISONE. [Concomitant]
     Active Substance: PREDNISONE
     Indication: POLYMYALGIA RHEUMATICA
     Dosage: EVERY OTHER DAY
     Route: 048
     Dates: end: 20180404
  6. FISH OIL [Concomitant]
     Active Substance: FISH OIL
     Route: 048
  7. FUROSEMIDE. [Concomitant]
     Active Substance: FUROSEMIDE
     Route: 048
  8. PREDNISONE. [Concomitant]
     Active Substance: PREDNISONE
     Indication: POLYMYALGIA RHEUMATICA
     Route: 048
     Dates: start: 20180102
  9. AMLODIPINE [Concomitant]
     Active Substance: AMLODIPINE BESYLATE
     Route: 048
  10. SIMVASTATIN. [Concomitant]
     Active Substance: SIMVASTATIN
     Route: 048
  11. PREDNISONE. [Concomitant]
     Active Substance: PREDNISONE
     Indication: POLYMYALGIA RHEUMATICA
     Route: 048
     Dates: start: 20180306
  12. XARELTO [Suspect]
     Active Substance: RIVAROXABAN
     Indication: ATRIAL FIBRILLATION
     Route: 048
     Dates: start: 20180116
  13. PREDNISONE. [Concomitant]
     Active Substance: PREDNISONE
     Indication: POLYMYALGIA RHEUMATICA
     Route: 048
     Dates: start: 20171229, end: 20180102
  14. XARELTO [Suspect]
     Active Substance: RIVAROXABAN
     Indication: CEREBROVASCULAR ACCIDENT PROPHYLAXIS
     Route: 048
     Dates: start: 20180116
  15. LISINOPRIL. [Concomitant]
     Active Substance: LISINOPRIL
     Route: 048
  16. ATENOLOL. [Concomitant]
     Active Substance: ATENOLOL
     Route: 048
  17. PRILOSEC [Concomitant]
     Active Substance: OMEPRAZOLE MAGNESIUM
     Indication: GASTRIC DISORDER
     Route: 048

REACTIONS (6)
  - Depression [Not Recovered/Not Resolved]
  - Hallucination [Recovered/Resolved]
  - Aphasia [Recovered/Resolved]
  - Weight increased [Not Recovered/Not Resolved]
  - Speech disorder [Recovered/Resolved]
  - Mania [Not Recovered/Not Resolved]

NARRATIVE: CASE EVENT DATE: 20180306
